FAERS Safety Report 15009809 (Version 1)
Quarter: 2018Q2

REPORT INFORMATION
  Report Type: Spontaneous
  Country: JP (occurrence: JP)
  Receive Date: 20180614
  Receipt Date: 20180614
  Transmission Date: 20180711
  Serious: Yes (Death, Life-Threatening, Other)
  Sender: FDA-Public Use
  Company Number: JP-ACCORD-068184

PATIENT
  Age: 3 Decade
  Sex: Female
  Weight: 67 kg

DRUGS (2)
  1. FLUNITRAZEPAM [Suspect]
     Active Substance: FLUNITRAZEPAM
     Indication: AFFECTIVE DISORDER
  2. QUETIAPINE. [Suspect]
     Active Substance: QUETIAPINE
     Indication: AFFECTIVE DISORDER

REACTIONS (4)
  - Loss of consciousness [Not Recovered/Not Resolved]
  - Brain oedema [Not Recovered/Not Resolved]
  - Intentional overdose [Fatal]
  - Hypothermia [Fatal]
